FAERS Safety Report 7655105-9 (Version None)
Quarter: 2011Q3

REPORT INFORMATION
  Report Type: 
  Country: None (occurrence: None)
  Receive Date: 20110804
  Receipt Date: 20110725
  Transmission Date: 20111222
  Serious: Yes (Hospitalization)
  Sender: FDA-Public Use
  Company Number: US-JNJFOC-20110712060

PATIENT
  Sex: Male
  Weight: 76.9 kg

DRUGS (4)
  1. LIALDA [Concomitant]
  2. MESALAMINE [Concomitant]
  3. REMICADE [Suspect]
     Indication: INFLAMMATORY BOWEL DISEASE
     Route: 042
     Dates: start: 20060113, end: 20090116
  4. HUMIRA [Concomitant]
     Dates: start: 20090304

REACTIONS (1)
  - PNEUMOTHORAX [None]
